FAERS Safety Report 11966255 (Version 2)
Quarter: 2016Q2

REPORT INFORMATION
  Report Type: Spontaneous
  Country: US (occurrence: US)
  Receive Date: 20160127
  Receipt Date: 20160505
  Transmission Date: 20160815
  Serious: Yes (Death, Hospitalization)
  Sender: FDA-Public Use
  Company Number: US-ACTELION-A-US2016-130368

PATIENT
  Age: 78 Year
  Sex: Female

DRUGS (2)
  1. COUMADIN [Concomitant]
     Active Substance: WARFARIN SODIUM
  2. OPSUMIT [Suspect]
     Active Substance: MACITENTAN
     Indication: PULMONARY ARTERIAL HYPERTENSION
     Dosage: 10 MG, QD
     Route: 048
     Dates: start: 20151214

REACTIONS (10)
  - Hypoxia [Unknown]
  - Dyspnoea [Unknown]
  - Oedema [Unknown]
  - Left ventricular failure [Unknown]
  - Cardio-respiratory arrest [Fatal]
  - Oxygen saturation decreased [Unknown]
  - Renal failure [Unknown]
  - Sepsis [Unknown]
  - Presyncope [Unknown]
  - Ventricular tachycardia [Unknown]
